FAERS Safety Report 7743929-9 (Version None)
Quarter: 2011Q3

REPORT INFORMATION
  Report Type: 
  Country: None (occurrence: None)
  Receive Date: 20110912
  Receipt Date: 20110905
  Transmission Date: 20111222
  Serious: Yes (Other)
  Sender: FDA-Public Use
  Company Number: JP-GLAXOSMITHKLINE-B0725125A

PATIENT
  Sex: Male
  Weight: 48 kg

DRUGS (23)
  1. ONCOVIN [Concomitant]
     Indication: NEOPLASM MALIGNANT
     Route: 042
     Dates: start: 20080409, end: 20080409
  2. METHOTREXATE [Concomitant]
     Indication: NEOPLASM MALIGNANT
     Route: 042
     Dates: start: 20080409, end: 20080409
  3. CYCLOPHOSPHAMIDE [Concomitant]
     Indication: NEOPLASM MALIGNANT
     Dosage: 60MGK PER DAY
     Route: 065
     Dates: start: 20080720, end: 20080721
  4. LANSOPRAZOLE [Concomitant]
     Route: 048
     Dates: start: 20080409, end: 20080423
  5. ARRANON [Suspect]
     Dosage: 650MGM2 PER DAY
     Route: 042
     Dates: start: 20091116, end: 20091120
  6. METHOTREXATE [Concomitant]
     Dates: start: 20080409, end: 20080409
  7. CYTARABINE [Concomitant]
     Indication: NEOPLASM MALIGNANT
     Dates: start: 20080409, end: 20080409
  8. CYTARABINE [Concomitant]
     Dosage: 4000MGM2 PER DAY
     Dates: start: 20080616, end: 20080619
  9. SOLU-CORTEF [Concomitant]
     Indication: NEOPLASM MALIGNANT
     Dates: start: 20080409, end: 20080409
  10. FLUDARABINE PHOSPHATE [Concomitant]
     Indication: NEOPLASM MALIGNANT
     Dosage: 30MGM2 PER DAY
     Route: 042
     Dates: start: 20080616, end: 20080619
  11. PREDNISOLONE [Concomitant]
     Dates: start: 20091117, end: 20091130
  12. ARRANON [Suspect]
     Indication: T-CELL TYPE ACUTE LEUKAEMIA
     Dosage: 650MGM2 PER DAY
     Route: 042
     Dates: start: 20080519, end: 20080523
  13. ALLOPURINOL [Concomitant]
     Route: 048
     Dates: start: 20091116, end: 20091206
  14. ARRANON [Suspect]
     Route: 042
     Dates: start: 20100118, end: 20100122
  15. ARRANON [Suspect]
     Dosage: 650MGM2 PER DAY
     Route: 042
     Dates: start: 20100208, end: 20100212
  16. DECADRON [Concomitant]
     Indication: NEOPLASM MALIGNANT
     Route: 048
     Dates: start: 20080409, end: 20080413
  17. ONCOVIN [Concomitant]
     Route: 042
     Dates: start: 20080414, end: 20080414
  18. CYTARABINE [Concomitant]
     Dosage: 4000MGM2 PER DAY
     Dates: start: 20080718, end: 20080718
  19. FAMOTIDINE [Concomitant]
     Route: 048
     Dates: start: 20080302, end: 20080408
  20. PREDNISOLONE [Concomitant]
     Route: 048
     Dates: start: 20091201, end: 20091210
  21. ARRANON [Suspect]
     Dosage: 650MGM2 PER DAY
     Route: 042
     Dates: start: 20091228, end: 20100101
  22. LEUKERIN [Concomitant]
     Indication: NEOPLASM MALIGNANT
     Route: 048
     Dates: start: 20080409, end: 20080413
  23. CYTARABINE [Concomitant]
     Route: 042
     Dates: start: 20080413, end: 20080413

REACTIONS (2)
  - SENSORY DISTURBANCE [None]
  - BONE MARROW FAILURE [None]
